FAERS Safety Report 6831119-3 (Version None)
Quarter: 2010Q3

REPORT INFORMATION
  Report Type: 
  Country: None (occurrence: None)
  Receive Date: 20100712
  Receipt Date: 20100701
  Transmission Date: 20110219
  Serious: Yes (Other)
  Sender: FDA-Public Use
  Company Number: BR-BAYER-201016352LA

PATIENT
  Age: 63 Year
  Sex: Male
  Weight: 93 kg

DRUGS (9)
  1. NEXAVAR [Suspect]
     Indication: HEPATIC NEOPLASM MALIGNANT
     Dosage: TOTAL DAILY DOSE: 800 MG  UNIT DOSE: 200 MG
     Route: 048
     Dates: start: 20100407
  2. METFORMIN HCL [Concomitant]
     Indication: DIABETES MELLITUS
     Route: 048
  3. ACTUS 15 [Concomitant]
     Indication: DIABETES MELLITUS
     Route: 048
  4. NPH INSULIN [Concomitant]
     Indication: DIABETES MELLITUS
     Route: 048
     Dates: start: 20080101
  5. TIVALLEC [Concomitant]
     Indication: VITAMIN SUPPLEMENTATION
     Dosage: 6 TABLETS / DAY
     Route: 048
  6. SIMVASTATIN [Concomitant]
     Dosage: 1 TABLET / DAY
     Route: 048
  7. ENALAPRIL MALEATE [Concomitant]
     Dosage: 1 TABLET / DAY
     Route: 048
  8. ASPIRIN [Concomitant]
     Indication: BLOOD DISORDER
     Dosage: 1 TABLET / DAY
     Route: 048
  9. PROPRANOLOL [Concomitant]
     Route: 048

REACTIONS (7)
  - ABDOMINAL DISTENSION [None]
  - ABDOMINAL PAIN [None]
  - BLOOD PRESSURE INCREASED [None]
  - DEFAECATION URGENCY [None]
  - DIARRHOEA [None]
  - HEPATIC NEOPLASM MALIGNANT [None]
  - TUMOUR NECROSIS [None]
